FAERS Safety Report 10852880 (Version 2)
Quarter: 2015Q1

REPORT INFORMATION
  Report Type: Spontaneous
  Country: US (occurrence: US)
  Receive Date: 20150223
  Receipt Date: 20150305
  Transmission Date: 20150721
  Serious: Yes (Other)
  Sender: FDA-Public Use
  Company Number: US-JNJCP-30000265757

PATIENT
  Sex: Female
  Weight: 68 kg

DRUGS (6)
  1. OMEPRAZOLE. [Concomitant]
     Active Substance: OMEPRAZOLE
     Indication: GASTROOESOPHAGEAL REFLUX DISEASE
     Dosage: ONE A DAY SINCE YEARS
  2. VITAMIN D [Concomitant]
     Active Substance: CHOLECALCIFEROL
     Indication: ROUTINE HEALTH MAINTENANCE
     Dosage: DAILY SINCE FIVE YEARS
  3. CALCIUM [Concomitant]
     Active Substance: CALCIUM
     Dosage: DAILY SINCE FIVE YEARS
  4. NEUTROGENA HEALTHY SKIN ANTI-WRINKLE CREAM SPF 15 [Suspect]
     Active Substance: ENSULIZOLE\OCTINOXATE
     Indication: SKIN WRINKLING
     Dosage: ONLY ONCE
     Route: 061
     Dates: start: 20150206, end: 20150206
  5. NEUTROGENA HEALTHY SKIN ANTI-WRINKLE ANTI-BLEMISH CLEANSER [Suspect]
     Active Substance: SALICYLIC ACID
     Indication: SKIN WRINKLING
     Dosage: ONLY ONCE
     Route: 061
     Dates: start: 20150206, end: 20150206
  6. OMETROZOLE [Concomitant]

REACTIONS (4)
  - Application site swelling [Recovering/Resolving]
  - Application site pain [Recovered/Resolved]
  - Eye swelling [Recovered/Resolved]
  - Application site erythema [Recovered/Resolved]

NARRATIVE: CASE EVENT DATE: 20150207
